FAERS Safety Report 6805911-5 (Version None)
Quarter: 2010Q2

REPORT INFORMATION
  Report Type: 
  Country: None (occurrence: None)
  Receive Date: 20100629
  Receipt Date: 20071115
  Transmission Date: 20101027
  Serious: Yes (Other)
  Sender: FDA-Public Use
  Company Number: US-PFIZER INC-2007088566

PATIENT
  Sex: Male

DRUGS (4)
  1. VIAGRA [Suspect]
  2. DOXAZOSIN MESYLATE [Concomitant]
     Indication: BENIGN PROSTATIC HYPERPLASIA
     Route: 048
  3. ADVAIR DISKUS 100/50 [Concomitant]
  4. NEXIUM [Concomitant]
     Route: 048

REACTIONS (1)
  - VISUAL IMPAIRMENT [None]
